FAERS Safety Report 8336603-1 (Version None)
Quarter: 2012Q2

REPORT INFORMATION
  Report Type: 
  Country: None (occurrence: None)
  Receive Date: 20120504
  Receipt Date: 20120426
  Transmission Date: 20120825
  Serious: Yes (Hospitalization)
  Sender: FDA-Public Use
  Company Number: US-PFIZER INC-2012097743

PATIENT
  Sex: Female
  Weight: 60.68 kg

DRUGS (14)
  1. MEGESTROL ACETATE [Concomitant]
     Dosage: UNK
  2. ALPRAZOLAM [Concomitant]
     Dosage: UNK
  3. PROCHLORPERAZINE [Concomitant]
     Dosage: UNK
  4. IRINOTECAN HCL [Suspect]
     Indication: COLORECTAL CANCER METASTATIC
     Dosage: 180 MG/M2, DAY 1 EVERY 14 DAYS
     Route: 042
     Dates: start: 20120227, end: 20120227
  5. FLUOROURACIL [Suspect]
     Indication: COLORECTAL CANCER METASTATIC
     Dosage: 400 MG/M2, DAY 1 EVERY 14 DAYS
     Route: 040
     Dates: start: 20120227, end: 20120227
  6. FLUOROURACIL [Suspect]
     Dosage: 2400 MG/M2, DAYS 1 AND 2 EVERY 14 DAYS
     Route: 042
     Dates: start: 20120227, end: 20120227
  7. BLINDED THERAPY [Suspect]
     Indication: COLORECTAL CANCER METASTATIC
     Dosage: EVERY 14 DAYS
     Route: 042
     Dates: start: 20120227, end: 20120227
  8. LORAZEPAM [Concomitant]
     Dosage: UNK
     Dates: start: 20110803
  9. HYDROMORPHONE HYDROCHLORIDE [Concomitant]
     Dosage: UNK
  10. FENTANYL [Concomitant]
     Dosage: UNK
  11. FOLINIC ACID [Suspect]
     Indication: COLORECTAL CANCER METASTATIC
     Dosage: 400 MG/M2, DAY 1 EVERY 14 DAYS
     Route: 042
     Dates: start: 20120227, end: 20120227
  12. ONDANSETRON HYDROCHLORIDE [Concomitant]
     Dosage: UNK
  13. MAGNESIUM CITRATE [Concomitant]
     Dosage: UNK
  14. POLYETHYLENE GLYCOL [Concomitant]
     Dosage: UNK

REACTIONS (1)
  - ENTEROCOLITIS [None]
